FAERS Safety Report 14254227 (Version 1)
Quarter: 2017Q4

REPORT INFORMATION
  Report Type: Spontaneous
  Country: US (occurrence: US)
  Receive Date: 20171206
  Receipt Date: 20171206
  Transmission Date: 20180321
  Serious: Yes (Hospitalization)
  Sender: FDA-Public Use
  Company Number: US-TEVA-2017-US-829858

PATIENT

DRUGS (1)
  1. MODAFINIL. [Suspect]
     Active Substance: MODAFINIL

REACTIONS (1)
  - Gastrostomy [Unknown]
